FAERS Safety Report 10690649 (Version 2)
Quarter: 2015Q1

REPORT INFORMATION
  Report Type: Spontaneous
  Country: US (occurrence: None)
  Receive Date: 20150102
  Receipt Date: 20150122
  Transmission Date: 20150720
  Serious: Yes (Other)
  Sender: FDA-Public Use
  Company Number: 2014-US-017069

PATIENT
  Age: 30 Year
  Sex: Male

DRUGS (2)
  1. XYREM [Suspect]
     Active Substance: SODIUM OXYBATE
     Indication: NARCOLEPSY
     Route: 048
     Dates: start: 201308, end: 2013
  2. XYREM [Suspect]
     Active Substance: SODIUM OXYBATE
     Indication: CATAPLEXY
     Route: 048
     Dates: start: 201308, end: 2013

REACTIONS (4)
  - Hydrocele [None]
  - Impaired driving ability [None]
  - Post procedural haemorrhage [None]
  - Gait disturbance [None]

NARRATIVE: CASE EVENT DATE: 201412
